FAERS Safety Report 4843580-4 (Version None)
Quarter: 2005Q4

REPORT INFORMATION
  Report Type: 
  Country: None (occurrence: None)
  Receive Date: 20051202
  Receipt Date: 20051124
  Transmission Date: 20060501
  Serious: Yes (Hospitalization)
  Sender: FDA-Public Use
  Company Number: DK-BOEHRINGER INGELHEIM PHARMACEUTICALS, INC.-2005-DE-05216GD

PATIENT
  Age: 48 Year
  Sex: Female

DRUGS (2)
  1. NEVIRAPINE [Suspect]
     Indication: HIV TEST POSITIVE
     Dates: start: 20030901
  2. ANTIRETROVIRAL AGENTS [Concomitant]
     Indication: HIV TEST POSITIVE

REACTIONS (5)
  - CHILLS [None]
  - EOSINOPHILIA [None]
  - HEPATOTOXICITY [None]
  - PYREXIA [None]
  - RASH MACULO-PAPULAR [None]
